FAERS Safety Report 10274483 (Version 3)
Quarter: 2015Q1

REPORT INFORMATION
  Report Type: Spontaneous
  Country: US (occurrence: US)
  Receive Date: 20140702
  Receipt Date: 20150119
  Transmission Date: 20150720
  Serious: Yes (Death, Hospitalization, Other)
  Sender: FDA-Public Use
  Company Number: US-009507513-1407USA000500

PATIENT
  Sex: Male
  Weight: 112.2 kg

DRUGS (3)
  1. VICTOZA [Suspect]
     Active Substance: LIRAGLUTIDE
     Dosage: 1.8 MG, QD
     Dates: start: 20110523, end: 20110714
  2. JANUVIA [Suspect]
     Active Substance: SITAGLIPTIN PHOSPHATE
     Indication: TYPE 2 DIABETES MELLITUS
     Dosage: UNK, QD
     Route: 048
     Dates: start: 201002, end: 201010
  3. BYETTA [Suspect]
     Active Substance: EXENATIDE
     Dosage: 5 MICROGRAM, QD
     Dates: start: 20110603, end: 20110703

REACTIONS (15)
  - Coronary arterial stent insertion [Unknown]
  - Dyslipidaemia [Unknown]
  - Skin neoplasm excision [Unknown]
  - Spinal operation [Unknown]
  - Metastases to liver [Unknown]
  - Pancreatic carcinoma stage IV [Unknown]
  - Hypertension [Unknown]
  - Skin cancer [Unknown]
  - Death [Fatal]
  - Anxiety disorder [Unknown]
  - Depression [Unknown]
  - Tension [Unknown]
  - Gout [Unknown]
  - Irritable bowel syndrome [Unknown]
  - Type 1 diabetes mellitus [Unknown]

NARRATIVE: CASE EVENT DATE: 20101014
